FAERS Safety Report 9838455 (Version 2)
Quarter: 2014Q1

REPORT INFORMATION
  Report Type: Spontaneous
  Country: US (occurrence: US)
  Receive Date: 20140123
  Receipt Date: 20140123
  Transmission Date: 20141002
  Serious: Yes (Death, Hospitalization)
  Sender: FDA-Public Use
  Company Number: US-ASTELLAS-2009003461

PATIENT
  Age: 62 Year
  Sex: Male
  Weight: 104 kg

DRUGS (1)
  1. TARCEVA [Suspect]
     Indication: LUNG NEOPLASM MALIGNANT
     Dosage: UNK
     Route: 048
     Dates: start: 20091104, end: 20091108

REACTIONS (1)
  - Hepatic failure [Fatal]
